FAERS Safety Report 8867077 (Version 1)
Quarter: 2012Q4

REPORT INFORMATION
  Report Type: 
  Country: US (occurrence: US)
  Receive Date: 20121025
  Receipt Date: 20121025
  Transmission Date: 20130627
  Serious: No
  Sender: FDA-Public Use
  Company Number: US-AMGEN-USASP2012014594

PATIENT
  Age: 62 Year
  Sex: Male
  Weight: 102.4 kg

DRUGS (10)
  1. ENBREL [Suspect]
     Indication: PRODUCT USED FOR UNKNOWN INDICATION
     Dosage: 25 mg, 2 times/wk
     Route: 058
  2. PREDNISONE [Concomitant]
     Dosage: 10 mg, UNK
  3. CELEXA [Concomitant]
     Dosage: 10 mg, UNK
  4. MAXAIR [Concomitant]
     Dosage: 200 mug, UNK
  5. ASPIRIN [Concomitant]
     Dosage: 81 mg, UNK
  6. AMBIEN [Concomitant]
     Dosage: 10 mg, UNK
  7. MULTIVITAMIN                       /00097801/ [Concomitant]
     Dosage: UNK
  8. VITAMIN C                          /00008001/ [Concomitant]
     Dosage: 500 mg, UNK
  9. FISH OIL [Concomitant]
     Dosage: UNK
  10. ALEVE [Concomitant]
     Dosage: 220 mg, UNK

REACTIONS (4)
  - Injection site erythema [Unknown]
  - Injection site pruritus [Unknown]
  - Injection site bruising [Unknown]
  - Bronchitis [Unknown]
